FAERS Safety Report 19087355 (Version 1)
Quarter: 2021Q2

REPORT INFORMATION
  Report Type: Spontaneous
  Country: US (occurrence: US)
  Receive Date: 20210402
  Receipt Date: 20210402
  Transmission Date: 20210717
  Serious: Yes (Other)
  Sender: FDA-Public Use
  Company Number: US-FRESENIUS KABI-FK202103397

PATIENT
  Age: 26 Week

DRUGS (9)
  1. ATROPINE (MANUFACTURER UNKNOWN) [Suspect]
     Active Substance: ATROPINE
     Indication: ANAESTHESIA
     Dosage: 20 MCG/KG
     Route: 064
  2. MIDAZOLAM (MANUFACTURER UNKNOWN) [Suspect]
     Active Substance: MIDAZOLAM HYDROCHLORIDE
     Indication: SEDATION
     Route: 064
  3. BETAMETHASONE. [Concomitant]
     Active Substance: BETAMETHASONE
     Indication: DRUG THERAPY
  4. BETAMETHASONE. [Concomitant]
     Active Substance: BETAMETHASONE
     Indication: PULMONARY SEQUESTRATION
     Route: 065
  5. MAGNESIUM SULFATE (MANUFACTURER UNKNOWN) [Suspect]
     Active Substance: MAGNESIUM SULFATE
     Indication: TOCOLYSIS
     Route: 064
  6. FENTANYL (MANUFACTURER UNKNOWN) [Suspect]
     Active Substance: FENTANYL
     Indication: ANAESTHESIA
     Dosage: 10 MCG/KG
     Route: 064
  7. LIDOCAINE 1% (MANUFACTURER UNKNOWN) [Suspect]
     Active Substance: LIDOCAINE HYDROCHLORIDE
     Indication: SEDATION
     Route: 064
  8. VECURONIUM (MANUFACTURER UNKNOWN) [Suspect]
     Active Substance: VECURONIUM BROMIDE
     Indication: ANAESTHESIA
     Route: 064
  9. PROPOFOL (MANUFACTURER UNKNOWN) [Suspect]
     Active Substance: PROPOFOL
     Indication: SEDATION
     Dosage: 25?65 MCG/KG/MINUTE
     Route: 064

REACTIONS (5)
  - Pleural effusion [Recovered/Resolved]
  - Foetal exposure during pregnancy [Recovered/Resolved]
  - Tachycardia [Recovered/Resolved]
  - Cardiac dysfunction [Recovered/Resolved]
  - Ascites [Recovered/Resolved]
